FAERS Safety Report 15959376 (Version 2)
Quarter: 2019Q1

REPORT INFORMATION
  Report Type: Spontaneous
  Country: AU (occurrence: AU)
  Receive Date: 20190214
  Receipt Date: 20190219
  Transmission Date: 20190417
  Serious: Yes (Hospitalization, Other)
  Sender: FDA-Public Use
  Company Number: AU-SA-2019SA038447

PATIENT
  Sex: Female

DRUGS (1)
  1. DUPILUMAB [Suspect]
     Active Substance: DUPILUMAB
     Dosage: UNK
     Route: 058
     Dates: start: 20181129

REACTIONS (6)
  - Vulvovaginal candidiasis [Recovered/Resolved]
  - Pelvic inflammatory disease [Recovered/Resolved]
  - Eye pain [Recovered/Resolved]
  - Abdominal pain [Recovered/Resolved]
  - Pelvic pain [Unknown]
  - Oral herpes [Recovered/Resolved]
